FAERS Safety Report 8065380-7 (Version None)
Quarter: 2012Q1

REPORT INFORMATION
  Report Type: 
  Country: None (occurrence: None)
  Receive Date: 20120124
  Receipt Date: 20120120
  Transmission Date: 20120608
  Serious: Yes (Death, Other)
  Sender: FDA-Public Use
  Company Number: JP-BAYER-2012-006690

PATIENT
  Age: 54 Year
  Sex: Male
  Weight: 63 kg

DRUGS (5)
  1. OLOPATADINE HCL [Concomitant]
     Dosage: DAILY DOSE 10 MG
     Route: 048
  2. ATARAX [Concomitant]
     Dosage: DAILY DOSE 50 MG
     Route: 048
     Dates: start: 20111101, end: 20111117
  3. NEXAVAR [Suspect]
     Indication: HEPATIC NEOPLASM MALIGNANT
     Dosage: 400 MG, QD
     Route: 048
     Dates: start: 20111029, end: 20111102
  4. LANSOPRAZOLE [Concomitant]
     Indication: GASTRITIS PROPHYLAXIS
     Dosage: DAILY DOSE 15 MG
     Route: 048
  5. HIRUDOID [Concomitant]
     Indication: PROPHYLAXIS
     Dosage: UNK
     Route: 061
     Dates: start: 20111029, end: 20111102

REACTIONS (7)
  - HEPATIC NEOPLASM MALIGNANT [None]
  - PYREXIA [None]
  - NEUTROPHIL COUNT INCREASED [None]
  - HEPATIC FUNCTION ABNORMAL [None]
  - INSOMNIA [None]
  - HYPERTENSION [None]
  - CONSTIPATION [None]
